FAERS Safety Report 18851670 (Version 1)
Quarter: 2021Q1

REPORT INFORMATION
  Report Type: Spontaneous
  Country: US (occurrence: US)
  Receive Date: 20210205
  Receipt Date: 20210205
  Transmission Date: 20210420
  Serious: Yes (Disabling)
  Sender: FDA-Public Use
  Company Number: None

PATIENT
  Age: 43 Year
  Sex: Female
  Weight: 67.5 kg

DRUGS (5)
  1. MULTIVITAMIN [Concomitant]
     Active Substance: VITAMINS
  2. VITAMIN B12 [Concomitant]
     Active Substance: CYANOCOBALAMIN
  3. LATANOPROST OPTHAMALIC SOLUTION [Suspect]
     Active Substance: LATANOPROST
     Indication: OPEN ANGLE GLAUCOMA
     Dosage: ?          QUANTITY:1 DROP(S);?
     Route: 047
     Dates: start: 20200901, end: 20210126
  4. VITAMIN D [Concomitant]
     Active Substance: VITAMIN D NOS
  5. CARAFATE [Concomitant]
     Active Substance: SUCRALFATE

REACTIONS (21)
  - Diarrhoea [None]
  - Oropharyngeal pain [None]
  - Cough [None]
  - Mental disorder [None]
  - Gastrointestinal disorder [None]
  - Chest discomfort [None]
  - Anxiety [None]
  - Bone pain [None]
  - Abnormal faeces [None]
  - Blood urea decreased [None]
  - Ulcer [None]
  - Eye pain [None]
  - Faeces discoloured [None]
  - Dry mouth [None]
  - Dyspnoea [None]
  - Dyspepsia [None]
  - Gastrooesophageal reflux disease [None]
  - Palpitations [None]
  - Duodenogastric reflux [None]
  - Mania [None]
  - Asthenia [None]

NARRATIVE: CASE EVENT DATE: 20201209
